FAERS Safety Report 9468972 (Version 1)
Quarter: 2013Q3

REPORT INFORMATION
  Report Type: Spontaneous
  Country: US (occurrence: US)
  Receive Date: 20130821
  Receipt Date: 20130821
  Transmission Date: 20140515
  Serious: Yes (Other)
  Sender: FDA-Public Use
  Company Number: US-PFIZER INC-2013234378

PATIENT
  Age: 76 Year
  Sex: Male

DRUGS (8)
  1. BENZOCAINE [Suspect]
     Indication: LOCAL ANAESTHESIA
     Dosage: UNK
     Route: 061
  2. ALBUTEROL [Concomitant]
     Indication: CHRONIC OBSTRUCTIVE PULMONARY DISEASE
     Dosage: AS NEEDED
  3. IPRATROPIUM [Concomitant]
     Indication: CHRONIC OBSTRUCTIVE PULMONARY DISEASE
     Dosage: AS NEEDED
  4. KETOROLAC [Concomitant]
     Dosage: ONE DOSE
  5. MORPHINE [Concomitant]
     Dosage: AS NEEDED
  6. PANTOPRAZOLE [Concomitant]
  7. CEFAZOLIN [Concomitant]
     Dosage: (TWO DOSES)
  8. PIPERACILLIN/TAZOBACTAM [Concomitant]

REACTIONS (5)
  - Methaemoglobinaemia [Recovered/Resolved]
  - Renal failure acute [Not Recovered/Not Resolved]
  - Haematuria [Not Recovered/Not Resolved]
  - Renal tubular necrosis [Not Recovered/Not Resolved]
  - Renal tubular disorder [Not Recovered/Not Resolved]
